FAERS Safety Report 8961593 (Version 2)
Quarter: 2013Q1

REPORT INFORMATION
  Report Type: Spontaneous
  Country: DE (occurrence: DE)
  Receive Date: 20121212
  Receipt Date: 20130109
  Transmission Date: 20140127
  Serious: Yes (Other)
  Sender: FDA-Public Use
  Company Number: DE-EISAI INC-E7389-03325-SPO-DE

PATIENT
  Age: 66 Year
  Sex: Female
  Weight: 67 kg

DRUGS (25)
  1. HALAVEN [Suspect]
     Indication: BREAST CANCER METASTATIC
     Route: 041
     Dates: start: 20121031
  2. EXEMESTAN [Concomitant]
     Dosage: UNKNOWN
     Route: 048
     Dates: start: 201210
  3. EVEROLIMUS [Concomitant]
     Dosage: UNKNOWN
     Route: 048
     Dates: start: 201210
  4. ABNOBAVISCUM FRAXINI [Concomitant]
     Route: 058
     Dates: start: 201210
  5. HELLEBORUS NIGER [Concomitant]
     Dosage: UNKNOWN
     Route: 058
  6. PULMO/MERCURIUS [Concomitant]
     Dosage: UNKNOWN
     Route: 058
  7. L-THYROXIN [Concomitant]
     Route: 048
  8. BISOPROLOL [Concomitant]
     Route: 048
  9. ACETYLDIGOXIN [Concomitant]
     Route: 048
  10. TORASEMID [Concomitant]
     Route: 048
  11. SPIRONOLACTON [Concomitant]
     Route: 048
  12. KALIUM [Concomitant]
     Route: 048
  13. CRATAEGUS [Concomitant]
     Route: 048
  14. CORDIODORON [Concomitant]
     Dosage: UNKNOWN
     Route: 048
  15. CARDUUS MARIANUS [Concomitant]
     Dosage: UNKNOWN
     Route: 048
  16. OPIPRAMOL [Concomitant]
     Route: 048
  17. PANTOPRAZOL [Concomitant]
     Route: 048
  18. NEURODORON [Concomitant]
     Dosage: UNKNOWN
     Route: 048
  19. METFORMIN [Concomitant]
     Route: 048
  20. LANTUS [Concomitant]
     Route: 048
  21. METAMIZOL [Concomitant]
     Route: 048
  22. DENOSUMAB [Concomitant]
     Route: 058
  23. CALCIUM/VITAMIN D3 [Concomitant]
     Dosage: 500MG/400IE
     Route: 048
  24. TILIDIN/NALOXON [Concomitant]
     Dosage: 50/4 MG
     Route: 048
  25. GLIMEPIRID [Concomitant]
     Route: 048

REACTIONS (1)
  - Tachycardia [Recovered/Resolved]
